FAERS Safety Report 6453894-2 (Version None)
Quarter: 2009Q4

REPORT INFORMATION
  Report Type: 
  Country: None (occurrence: None)
  Receive Date: 20091117
  Receipt Date: 20091105
  Transmission Date: 20100525
  Serious: Yes (Hospitalization, Disabling)
  Sender: FDA-Public Use
  Company Number: 232714J09USA

PATIENT
  Age: 50 Year
  Sex: Male

DRUGS (2)
  1. REBIF [Suspect]
     Indication: MULTIPLE SCLEROSIS
     Dosage: 44 MCG, 3 IN 1 WEEKS, SUBCUTANEOUS
     Route: 058
     Dates: start: 20081105
  2. METFORMIN HCL [Concomitant]

REACTIONS (3)
  - IMMOBILE [None]
  - PULMONARY THROMBOSIS [None]
  - THROMBOSIS [None]
